FAERS Safety Report 8094051-6 (Version None)
Quarter: 2012Q1

REPORT INFORMATION
  Report Type: 
  Country: None (occurrence: None)
  Receive Date: 20120131
  Receipt Date: 20120127
  Transmission Date: 20120608
  Serious: Yes (Life-Threatening)
  Sender: FDA-Public Use
  Company Number: IT-BRISTOL-MYERS SQUIBB COMPANY-16346454

PATIENT
  Age: 81 Year
  Sex: Male

DRUGS (5)
  1. CITALOPRAM [Concomitant]
     Route: 048
  2. NEXIUM [Concomitant]
     Dosage: TABS
     Route: 048
  3. AMOXICILLIN [Concomitant]
     Indication: PYREXIA
     Route: 048
     Dates: start: 20111101, end: 20111107
  4. COUMADIN [Suspect]
     Indication: ATRIAL FIBRILLATION
     Dosage: 1DF:1UNIT INTERRUPTED ON 14NOV2011
     Dates: start: 19970101
  5. VERAPAMIL HCL [Concomitant]
     Route: 048

REACTIONS (3)
  - RETROPERITONEAL HAEMATOMA [None]
  - SHOCK HAEMORRHAGIC [None]
  - ANAEMIA [None]
